FAERS Safety Report 8586059-9 (Version None)
Quarter: 2012Q3

REPORT INFORMATION
  Report Type: 
  Country: None (occurrence: None)
  Receive Date: 20120810
  Receipt Date: 20120806
  Transmission Date: 20120928
  Serious: Yes (Other)
  Sender: FDA-Public Use
  Company Number: US-PFIZER INC-2012094990

PATIENT
  Age: 69 Year
  Sex: Male

DRUGS (22)
  1. CYANOCOBALAMIN [Concomitant]
     Dosage: UNK
  2. FOLIC ACID [Concomitant]
     Dosage: UNK
  3. PYRIDOXINE [Concomitant]
     Dosage: UNK
  4. CODEINE AND GUAIFENESIN [Concomitant]
     Dosage: UNK
  5. AZATHIOPRINE [Suspect]
     Dosage: UNK
  6. ASPIRIN [Concomitant]
     Dosage: UNK
  7. NPH INSULIN [Concomitant]
     Dosage: UNK
  8. REGULAR HUMAN [Concomitant]
     Dosage: UNK
  9. PREDNISONE [Concomitant]
     Dosage: UNK
  10. ASCORBIC ACID [Concomitant]
     Dosage: UNK
  11. IPRATROPIUM [Concomitant]
     Dosage: UNK
  12. POTASSIUM CHLORIDE [Concomitant]
     Dosage: UNK
  13. LETAIRIS [Suspect]
     Indication: PULMONARY HYPERTENSION
     Dosage: 10 MG, UNK
     Route: 048
     Dates: start: 20101012, end: 20120224
  14. LETAIRIS [Suspect]
     Indication: PULMONARY FIBROSIS
     Dosage: 5 MG, UNK
     Route: 048
     Dates: start: 20120316, end: 20120624
  15. BENZONATATE [Concomitant]
     Dosage: UNK
  16. FUROSEMIDE [Concomitant]
     Dosage: UNK
  17. METFORMIN [Concomitant]
     Dosage: UNK
     Dates: end: 20120223
  18. IMURAN [Concomitant]
     Dosage: UNK
     Dates: end: 20120302
  19. DOXYCYCLINE [Concomitant]
     Dosage: UNK
  20. ATORVASTATIN CALCIUM [Suspect]
     Dosage: UNK
     Dates: end: 20120223
  21. LETAIRIS [Suspect]
     Dosage: 10 UNK
     Route: 048
     Dates: start: 20120624
  22. TOCOPHERYL ACETATE [Concomitant]
     Dosage: UNK

REACTIONS (10)
  - DECREASED APPETITE [None]
  - NAUSEA [None]
  - VOMITING [None]
  - ABNORMAL LOSS OF WEIGHT [None]
  - VIRAL INFECTION [None]
  - CRYPTOGENIC CIRRHOSIS [None]
  - JAUNDICE [None]
  - ABDOMINAL PAIN [None]
  - LIVER FUNCTION TEST ABNORMAL [None]
  - NON-ALCOHOLIC STEATOHEPATITIS [None]
